FAERS Safety Report 5911689-X (Version None)
Quarter: 2008Q4

REPORT INFORMATION
  Report Type: 
  Country: None (occurrence: None)
  Receive Date: 20081007
  Receipt Date: 20080927
  Transmission Date: 20090506
  Serious: Yes (Hospitalization, Other)
  Sender: FDA-Public Use
  Company Number: US-ELI_LILLY_AND_COMPANY-US200809006316

PATIENT
  Sex: Female
  Weight: 93.878 kg

DRUGS (12)
  1. BYETTA [Suspect]
     Indication: TYPE 2 DIABETES MELLITUS
     Dosage: 5 UG, 2/D
     Route: 058
     Dates: start: 20050101, end: 20060101
  2. BYETTA [Suspect]
     Dosage: 10 UG, 2/D
     Route: 058
     Dates: start: 20060101, end: 20080912
  3. BYETTA [Suspect]
     Dosage: 10 UG, 2/D
     Route: 058
     Dates: start: 20080918
  4. AVANDIA [Concomitant]
     Indication: TYPE 2 DIABETES MELLITUS
     Dosage: 8 MG, DAILY (1/D)
     Route: 048
     Dates: start: 20050101
  5. HUMALOG [Concomitant]
     Indication: TYPE 2 DIABETES MELLITUS
     Dosage: UNK, OTHER
     Route: 058
  6. LANTUS [Concomitant]
     Indication: TYPE 2 DIABETES MELLITUS
     Dosage: 15 U, EACH EVENING
     Route: 058
  7. POTASSIUM CHLORIDE [Concomitant]
     Indication: ELECTROLYTE SUBSTITUTION THERAPY
     Dosage: 20 MEQ, 2/D
     Route: 048
     Dates: start: 20040101
  8. LASIX [Concomitant]
     Indication: POLYURIA
     Dosage: 40 MG, 2/D
     Route: 048
     Dates: start: 20040101
  9. DIOVAN [Concomitant]
     Indication: CARDIAC FAILURE CONGESTIVE
     Dosage: 320 MG, DAILY (1/D)
     Route: 048
     Dates: start: 20040101
  10. CARVEDILOL [Concomitant]
     Indication: CARDIAC DISORDER
     Dosage: 25 MG, 2/D
     Route: 048
     Dates: start: 20040101
  11. ADVAIR DISKUS 100/50 [Concomitant]
     Indication: ASTHMA
     Dosage: UNK, UNKNOWN
     Dates: start: 20040101
  12. RAMIPRIL [Concomitant]
     Indication: BLOOD PRESSURE
     Dosage: UNK, UNKNOWN
     Route: 048
     Dates: start: 20080901

REACTIONS (13)
  - ACCIDENT [None]
  - ASTHENIA [None]
  - ASTHMA [None]
  - BLOOD GLUCOSE INCREASED [None]
  - DECREASED APPETITE [None]
  - DYSPNOEA [None]
  - FOOT FRACTURE [None]
  - GAIT DISTURBANCE [None]
  - HYPERSOMNIA [None]
  - NEUROPATHY PERIPHERAL [None]
  - PYREXIA [None]
  - STREPTOCOCCAL SEPSIS [None]
  - WEIGHT INCREASED [None]
